FAERS Safety Report 5504781-5 (Version None)
Quarter: 2007Q4

REPORT INFORMATION
  Report Type: 
  Country: None (occurrence: None)
  Receive Date: 20071031
  Receipt Date: 20071031
  Transmission Date: 20080405
  Serious: Yes (Hospitalization)
  Sender: FDA-Public Use
  Company Number: None

PATIENT
  Weight: 93.8 kg

DRUGS (6)
  1. FLUDARABINE PHOSPHATE [Suspect]
     Indication: CHRONIC LYMPHOCYTIC LEUKAEMIA
     Dosage: 25MG/M2 DAYS 1-3 Q4WKS X 6 MOS IV
     Route: 042
     Dates: start: 20060704
  2. FLUDARABINE PHOSPHATE [Suspect]
     Indication: CHRONIC LYMPHOCYTIC LEUKAEMIA
     Dosage: 25MG/M2 DAYS 1-3 Q4WKS X 6 MOS IV
     Route: 042
     Dates: start: 20060705
  3. FLUDARABINE PHOSPHATE [Suspect]
     Indication: CHRONIC LYMPHOCYTIC LEUKAEMIA
     Dosage: 25MG/M2 DAYS 1-3 Q4WKS X 6 MOS IV
     Route: 042
     Dates: start: 20060706
  4. CYCLOPHOSPHAMIDE [Suspect]
     Indication: CHRONIC LYMPHOCYTIC LEUKAEMIA
     Dosage: 250MG/M2 DAYS 1-3 Q4WKS X 6 MOS IV
     Route: 042
     Dates: start: 20060704
  5. CYCLOPHOSPHAMIDE [Suspect]
     Indication: CHRONIC LYMPHOCYTIC LEUKAEMIA
     Dosage: 250MG/M2 DAYS 1-3 Q4WKS X 6 MOS IV
     Route: 042
     Dates: start: 20060705
  6. CYCLOPHOSPHAMIDE [Suspect]
     Indication: CHRONIC LYMPHOCYTIC LEUKAEMIA
     Dosage: 250MG/M2 DAYS 1-3 Q4WKS X 6 MOS IV
     Route: 042
     Dates: start: 20060706

REACTIONS (1)
  - PNEUMONIA [None]
